FAERS Safety Report 5451826-7 (Version None)
Quarter: 2007Q3

REPORT INFORMATION
  Report Type: 
  Country: None (occurrence: None)
  Receive Date: 20070912
  Receipt Date: 20070828
  Transmission Date: 20080115
  Serious: Yes (Life-Threatening)
  Sender: FDA-Public Use
  Company Number: 100#08#2007-03369

PATIENT
  Age: 9 Year
  Sex: Female

DRUGS (4)
  1. CYCLOSPORINE [Suspect]
     Indication: RETINOBLASTOMA BILATERAL
     Dosage: 3000 MG
  2. CARBOPLATIN [Suspect]
     Indication: RETINOBLASTOMA BILATERAL
     Dosage: 80 MG            4 CYCLES
     Route: 057
  3. VINCRISTINE [Suspect]
     Indication: RETINOBLASTOMA BILATERAL
     Dosage: 2 MG
  4. TENIPOSIDE [Suspect]
     Indication: RETINOBLASTOMA BILATERAL
     Dosage: 480 MG

REACTIONS (3)
  - ACUTE MYELOID LEUKAEMIA [None]
  - BODY DYSMORPHIC DISORDER [None]
  - BONE MARROW TRANSPLANT [None]
